FAERS Safety Report 9263355 (Version 1)
Quarter: 2013Q2

REPORT INFORMATION
  Report Type: Spontaneous
  Country: US (occurrence: US)
  Receive Date: 20130430
  Receipt Date: 20130430
  Transmission Date: 20140414
  Serious: No
  Sender: FDA-Public Use
  Company Number: US-ABBOTT-12P-163-1019965-00

PATIENT
  Age: 78 Year
  Sex: Male
  Weight: 67.19 kg

DRUGS (1)
  1. CREON [Suspect]
     Indication: PANCREATIC ENZYMES ABNORMAL
     Dosage: 4 TIMES A DAY WITH MEALS
     Dates: start: 20121205

REACTIONS (2)
  - Abdominal discomfort [Not Recovered/Not Resolved]
  - Abdominal pain upper [Not Recovered/Not Resolved]
